FAERS Safety Report 20612879 (Version 1)
Quarter: 2022Q1

REPORT INFORMATION
  Report Type: Spontaneous
  Country: IL (occurrence: IL)
  Receive Date: 20220318
  Receipt Date: 20220318
  Transmission Date: 20220423
  Serious: No
  Sender: FDA-Public Use
  Company Number: IL-009507513-2203ISR003749

PATIENT
  Sex: Male

DRUGS (1)
  1. MOLNUPIRAVIR [Suspect]
     Active Substance: MOLNUPIRAVIR
     Indication: COVID-19
     Dosage: UNK
     Route: 048
     Dates: start: 20220308

REACTIONS (8)
  - Dyspnoea [Recovered/Resolved]
  - Discomfort [Recovered/Resolved]
  - Throat tightness [Recovered/Resolved]
  - Malaise [Recovered/Resolved]
  - Asthenia [Recovered/Resolved]
  - Flatulence [Recovered/Resolved]
  - Feeling abnormal [Recovered/Resolved]
  - Product dose omission issue [Unknown]

NARRATIVE: CASE EVENT DATE: 20220301
